FAERS Safety Report 20742951 (Version 1)
Quarter: 2022Q2

REPORT INFORMATION
  Report Type: Other
  Country: AR (occurrence: AR)
  Receive Date: 20220425
  Receipt Date: 20220425
  Transmission Date: 20220720
  Serious: Yes (Death, Hospitalization)
  Sender: FDA-Public Use
  Company Number: AR-TOLMAR, INC.-22AR032536

PATIENT
  Age: 82 Year
  Sex: Male

DRUGS (2)
  1. ELIGARD [Suspect]
     Active Substance: LEUPROLIDE ACETATE
     Indication: Prostate cancer
     Dosage: 22.5 MILLIGRAM, Q 3 MONTH
     Dates: start: 20211021
  2. ELIGARD [Suspect]
     Active Substance: LEUPROLIDE ACETATE
     Dosage: 22.5 MILLIGRAM, Q 3 MONTH
     Dates: start: 202108

REACTIONS (5)
  - Renal impairment [Unknown]
  - Oxygen saturation decreased [Unknown]
  - Cardiac arrest [Fatal]
  - Urinary retention [Unknown]
  - Hypotension [Unknown]

NARRATIVE: CASE EVENT DATE: 20220114
